FAERS Safety Report 4845897-6 (Version None)
Quarter: 2005Q4

REPORT INFORMATION
  Report Type: 
  Country: None (occurrence: None)
  Receive Date: 20051206
  Receipt Date: 20051129
  Transmission Date: 20060501
  Serious: Yes (Hospitalization)
  Sender: FDA-Public Use
  Company Number: JP-AVENTIS-200513594JP

PATIENT

DRUGS (1)
  1. ALLEGRA [Suspect]
     Route: 048
     Dates: start: 20051125, end: 20051125

REACTIONS (4)
  - DERMATITIS EXFOLIATIVE [None]
  - DIZZINESS [None]
  - RASH [None]
  - URTICARIA [None]
